FAERS Safety Report 7384236-6 (Version None)
Quarter: 2011Q1

REPORT INFORMATION
  Report Type: 
  Country: None (occurrence: None)
  Receive Date: 20110330
  Receipt Date: 20110324
  Transmission Date: 20110831
  Serious: Yes (Other)
  Sender: FDA-Public Use
  Company Number: JP-GENZYME-FLUD-1000895

PATIENT
  Age: 42 Year
  Sex: Male

DRUGS (5)
  1. TACROLIMUS [Concomitant]
     Indication: PROPHYLAXIS AGAINST GRAFT VERSUS HOST DISEASE
     Route: 065
  2. FLUDARA [Suspect]
     Indication: CORD BLOOD TRANSPLANT THERAPY
  3. FLUDARA [Suspect]
     Indication: ACUTE MYELOID LEUKAEMIA
     Dosage: 150 MG/M2, UNK
     Route: 065
  4. BUSULFAN [Suspect]
     Indication: CORD BLOOD TRANSPLANT THERAPY
     Dosage: UNK
     Route: 065
  5. BUSULFAN [Suspect]
     Indication: ACUTE MYELOID LEUKAEMIA

REACTIONS (3)
  - HISTIOCYTOSIS HAEMATOPHAGIC [None]
  - CHRONIC GRAFT VERSUS HOST DISEASE [None]
  - TYPE III IMMUNE COMPLEX MEDIATED REACTION [None]
